FAERS Safety Report 7729306-5 (Version None)
Quarter: 2011Q3

REPORT INFORMATION
  Report Type: 
  Country: None (occurrence: None)
  Receive Date: 20110906
  Receipt Date: 20110826
  Transmission Date: 20111222
  Serious: Yes (Hospitalization)
  Sender: FDA-Public Use
  Company Number: BR-SANOFI-AVENTIS-2011SA043735

PATIENT
  Age: 75 Year
  Sex: Male
  Weight: 84 kg

DRUGS (15)
  1. TYROSINE [Concomitant]
  2. LOSARTAN [Concomitant]
  3. LEVOTHYROXINE SODIUM [Concomitant]
  4. DIURETICS [Concomitant]
  5. WARFARIN SODIUM [Concomitant]
  6. CARVEDILOL [Concomitant]
  7. OMEPRAZOLE [Concomitant]
  8. FUROSEMIDE [Concomitant]
  9. PIPERACILLIN AND TAZOBACTAM [Concomitant]
     Dates: start: 20110424
  10. INSULIN [Concomitant]
  11. METFORMIN HCL [Concomitant]
  12. AVELOX [Concomitant]
     Dates: end: 20110423
  13. DRONEDARONE HCL [Suspect]
     Indication: ATRIAL FIBRILLATION
     Route: 048
     Dates: start: 20110511
  14. SPIRONOLACTONE [Concomitant]
  15. LASIX [Concomitant]

REACTIONS (2)
  - ISCHAEMIC STROKE [None]
  - CARDIAC FAILURE [None]
